FAERS Safety Report 9305661 (Version 2)
Quarter: 2013Q2

REPORT INFORMATION
  Report Type: Spontaneous
  Country: ES (occurrence: ES)
  Receive Date: 20130523
  Receipt Date: 20130621
  Transmission Date: 20140414
  Serious: Yes (Hospitalization, Other)
  Sender: FDA-Public Use
  Company Number: ES-PFIZER INC-2013156602

PATIENT
  Age: 74 Year
  Sex: Male

DRUGS (9)
  1. CELEBREX [Suspect]
     Dosage: UNK
     Dates: start: 20120517
  2. OMEPRAZOLE [Suspect]
     Dosage: UNK
     Dates: start: 20120417
  3. PARAPRES PLUS [Suspect]
     Dosage: UNK
     Dates: start: 20120127
  4. RONAME [Suspect]
     Dosage: UNK
     Route: 048
     Dates: start: 20120626
  5. TRAJENTA [Suspect]
     Dosage: UNK
     Dates: start: 20120417
  6. VYTORIN [Suspect]
     Dosage: UNK
     Dates: start: 20120525
  7. PLANTAGO OVATA DAV [Concomitant]
  8. ADIRO [Concomitant]
  9. NOLOTIL /SPA/ [Concomitant]
     Dosage: UNK

REACTIONS (2)
  - Abdominal pain [Recovered/Resolved]
  - Hepatitis cholestatic [Not Recovered/Not Resolved]
